FAERS Safety Report 23663791 (Version 1)
Quarter: 2024Q1

REPORT INFORMATION
  Report Type: Spontaneous
  Country: US (occurrence: US)
  Receive Date: 20240322
  Receipt Date: 20240322
  Transmission Date: 20240409
  Serious: No
  Sender: FDA-Public Use
  Company Number: US-009507513-2403USA003232

PATIENT
  Age: 64 Year
  Sex: Male

DRUGS (2)
  1. TEMODAR [Suspect]
     Active Substance: TEMOZOLOMIDE
     Indication: Glioblastoma
     Dosage: CONTINUOUS DAILY DOSE SCHEDULE, 7 DAYS A WEEK FOR THE SAME 6 WEEKS AT A DOSE OF 75MG/SQ METER/D
     Route: 048
  2. TEMODAR [Suspect]
     Active Substance: TEMOZOLOMIDE
     Dosage: SIX ADJUVANT CYCLES (28-DAY CYCLE, 5 DAYS ON AND 23 DAYS OFF) AT 150 MG/SQ METER/D FOR 5 DAYS FOR CY
     Route: 048

REACTIONS (1)
  - Drug ineffective [Unknown]
